FAERS Safety Report 8014613-1 (Version None)
Quarter: 2011Q4

REPORT INFORMATION
  Report Type: 
  Country: None (occurrence: None)
  Receive Date: 20111229
  Receipt Date: 20111219
  Transmission Date: 20120403
  Serious: Yes (Hospitalization)
  Sender: FDA-Public Use
  Company Number: NL-MEDIMMUNE-MEDI-0014148

PATIENT
  Sex: Male
  Weight: 6.82 kg

DRUGS (6)
  1. SOTALOL HYDROCHLORIDE [Concomitant]
  2. XYLOMETAXOLINE SPRAY 0.025% [Concomitant]
     Dosage: 1 PUFF
     Dates: end: 20111010
  3. CLONIDINE [Concomitant]
     Dates: end: 20111213
  4. SYNAGIS [Suspect]
     Indication: HEART DISEASE CONGENITAL
     Route: 030
     Dates: start: 20110916, end: 20111110
  5. SYNAGIS [Suspect]
     Route: 030
     Dates: start: 20111207
  6. HYPROMELLOSE [Concomitant]
     Route: 047

REACTIONS (10)
  - PNEUMONIA VIRAL [None]
  - HYPOPHAGIA [None]
  - RESTLESSNESS [None]
  - CRYING [None]
  - NASOPHARYNGITIS [None]
  - BRONCHIAL SECRETION RETENTION [None]
  - COUGH [None]
  - OXYGEN SATURATION DECREASED [None]
  - PYREXIA [None]
  - RASH [None]
